FAERS Safety Report 5679337-4 (Version None)
Quarter: 2008Q1

REPORT INFORMATION
  Report Type: 
  Country: None (occurrence: None)
  Receive Date: 20080325
  Receipt Date: 20080314
  Transmission Date: 20080703
  Serious: Yes (Other)
  Sender: FDA-Public Use
  Company Number: GR-ELI_LILLY_AND_COMPANY-GR200803003298

PATIENT
  Age: 65 Year
  Sex: Male

DRUGS (2)
  1. HUMALOG MIX 50/50 [Suspect]
     Indication: TYPE 2 DIABETES MELLITUS
     Dosage: 20 U IN THE MORNING AND AT NIGHT
     Route: 058
     Dates: start: 20080301, end: 20080311
  2. GLUCOPHAGE [Concomitant]
     Indication: TYPE 2 DIABETES MELLITUS
     Dosage: 850 MG IN MIDDAY
     Route: 048

REACTIONS (2)
  - ABDOMINAL DISTENSION [None]
  - BACK PAIN [None]
